FAERS Safety Report 4759743-2 (Version None)
Quarter: 2005Q3

REPORT INFORMATION
  Report Type: 
  Country: None (occurrence: None)
  Receive Date: 20050826
  Receipt Date: 20050610
  Transmission Date: 20060218
  Serious: No
  Sender: FDA-Public Use
  Company Number: 214606

PATIENT
  Age: 48 Year
  Sex: Male
  Weight: 88 kg

DRUGS (3)
  1. RAPTIVA [Suspect]
     Indication: PSORIASIS
     Dosage: 0.9 ML, 1/WEEK, SUBCUTANEOUS
     Route: 058
     Dates: start: 20050218
  2. ZOCOR [Concomitant]
  3. CAPTOPRIL [Concomitant]

REACTIONS (3)
  - HEADACHE [None]
  - MUSCULOSKELETAL STIFFNESS [None]
  - NECK PAIN [None]
